FAERS Safety Report 17022715 (Version 2)
Quarter: 2019Q4

REPORT INFORMATION
  Report Type: Spontaneous
  Country: FR (occurrence: FR)
  Receive Date: 20191112
  Receipt Date: 20191114
  Transmission Date: 20200122
  Serious: Yes (Other)
  Sender: FDA-Public Use
  Company Number: FR-MYLANLABS-2019M1107471

PATIENT
  Sex: Male

DRUGS (1)
  1. FUROSEMIDE MYLAN [Suspect]
     Active Substance: FUROSEMIDE
     Indication: PRODUCT USED FOR UNKNOWN INDICATION
     Dosage: 40 MILLIGRAM, TID

REACTIONS (2)
  - Lipase increased [Unknown]
  - Pancreatitis acute [Unknown]
